FAERS Safety Report 8348697-8 (Version None)
Quarter: 2012Q2

REPORT INFORMATION
  Report Type: 
  Country: None (occurrence: None)
  Receive Date: 20120510
  Receipt Date: 20120502
  Transmission Date: 20120825
  Serious: Yes (Other)
  Sender: FDA-Public Use
  Company Number: US-RB-039187-12

PATIENT
  Age: 92 Year
  Sex: Female

DRUGS (1)
  1. MUCINEX TABLETS [Suspect]
     Indication: PRODUCT USED FOR UNKNOWN INDICATION
     Dosage: TOOK THE PRODUCT FOR 5 DAYS
     Route: 048
     Dates: start: 20120401

REACTIONS (1)
  - HYPOTENSION [None]
